FAERS Safety Report 23837557 (Version 1)
Quarter: 2024Q2

REPORT INFORMATION
  Report Type: Spontaneous
  Country: US (occurrence: US)
  Receive Date: 20240509
  Receipt Date: 20240509
  Transmission Date: 20240716
  Serious: No
  Sender: FDA-Public Use
  Company Number: US-GE HEALTHCARE-2024CSU002361

PATIENT
  Sex: Female

DRUGS (1)
  1. OMNIPAQUE [Suspect]
     Active Substance: IOHEXOL
     Indication: Angiogram
     Dosage: 100 ML, TOTAL
     Route: 065

REACTIONS (1)
  - Pruritus [Recovered/Resolved]
